FAERS Safety Report 21415670 (Version 3)
Quarter: 2022Q4

REPORT INFORMATION
  Report Type: Report from Study
  Country: SE (occurrence: None)
  Receive Date: 20221006
  Receipt Date: 20221108
  Transmission Date: 20230113
  Serious: Yes (Hospitalization, Disabling)
  Sender: FDA-Public Use
  Company Number: SE-ROCHE-3172815

PATIENT
  Age: 70 Year
  Sex: Male
  Weight: 78 kg

DRUGS (2)
  1. ATEZOLIZUMAB [Suspect]
     Active Substance: ATEZOLIZUMAB
     Indication: Malignant melanoma
     Dosage: LAST DOSE OF ATEZOLIZUMAB PRIOR TO THE ONSET OF THE SAE WAS ON 17AUG2022
     Route: 041
     Dates: start: 20220324, end: 20220906
  2. PRADAXA [Concomitant]
     Active Substance: DABIGATRAN ETEXILATE MESYLATE
     Indication: Atrial fibrillation

REACTIONS (2)
  - Sepsis [Recovered/Resolved]
  - Tumour pain [Recovered/Resolved with Sequelae]

NARRATIVE: CASE EVENT DATE: 20220822
